FAERS Safety Report 25989712 (Version 1)
Quarter: 2025Q4

REPORT INFORMATION
  Report Type: Spontaneous
  Country: GB (occurrence: GB)
  Receive Date: 20251103
  Receipt Date: 20251103
  Transmission Date: 20260118
  Serious: Yes (Disabling, Other)
  Sender: ABBVIE
  Company Number: None

PATIENT
  Sex: Female

DRUGS (2)
  1. ATOGEPANT [Suspect]
     Active Substance: ATOGEPANT
     Indication: Adverse drug reaction
     Route: 048
     Dates: start: 20240615, end: 20240615
  2. ATOGEPANT [Suspect]
     Active Substance: ATOGEPANT
     Indication: Adverse drug reaction
     Route: 048
     Dates: start: 202407, end: 202407

REACTIONS (2)
  - Vestibular migraine [Recovered/Resolved]
  - Vestibular migraine [Recovered/Resolved]

NARRATIVE: CASE EVENT DATE: 20240615
